FAERS Safety Report 8936926 (Version 1)
Quarter: 2012Q4

REPORT INFORMATION
  Report Type: 
  Country: NO (occurrence: NO)
  Receive Date: 20121130
  Receipt Date: 20121130
  Transmission Date: 20130627
  Serious: Yes (Other)
  Sender: FDA-Public Use
  Company Number: PHHY2012NO109056

PATIENT
  Age: 50 Year
  Sex: Female

DRUGS (2)
  1. METHOTREXATE SODIUM [Suspect]
     Indication: RHEUMATOID ARTHRITIS
     Dosage: 15 mg, QW
     Dates: start: 201203, end: 201208
  2. METHOTREXATE SODIUM [Suspect]
     Dosage: 20 mg, weekly
     Dates: start: 201208

REACTIONS (2)
  - Cognitive disorder [Unknown]
  - Memory impairment [Unknown]
